FAERS Safety Report 4366541-0 (Version None)
Quarter: 2004Q2

REPORT INFORMATION
  Report Type: 
  Country: None (occurrence: None)
  Receive Date: 20040524
  Receipt Date: 20040510
  Transmission Date: 20050107
  Serious: Yes (Hospitalization)
  Sender: FDA-Public Use
  Company Number: SP-2004-001711

PATIENT
  Age: 65 Year
  Sex: Female

DRUGS (8)
  1. FALITHROM [Suspect]
     Indication: INFARCTION
     Dosage: 3 MG DAILY PO
     Route: 048
     Dates: start: 19990101, end: 20031214
  2. FALITHROM [Suspect]
     Indication: PROPHYLAXIS
     Dosage: 3 MG DAILY PO
     Route: 048
     Dates: start: 19990101, end: 20031214
  3. SIMVAHEXAL [Suspect]
     Indication: HYPERLIPIDAEMIA
     Dosage: 10 MG DAILY PO
     Route: 048
  4. VOTUM 40 [Suspect]
     Indication: HYPERTENSION
     Dosage: 40 MG QD PO
     Route: 048
  5. BISOPROLOL [Concomitant]
  6. CORAMEDAN [Concomitant]
  7. HCT-BETA [Concomitant]
  8. NIFE ^CT-ARZNEIMITTEL^ [Concomitant]

REACTIONS (3)
  - DUODENAL ULCER HAEMORRHAGE [None]
  - GASTRITIS EROSIVE [None]
  - HIATUS HERNIA [None]
